FAERS Safety Report 5695840-5 (Version None)
Quarter: 2008Q2

REPORT INFORMATION
  Report Type: 
  Country: None (occurrence: None)
  Receive Date: 20080407
  Receipt Date: 20080331
  Transmission Date: 20081010
  Serious: Yes (Other)
  Sender: FDA-Public Use
  Company Number: JP-JNJFOC-20080401204

PATIENT
  Age: 60 Year
  Sex: Male

DRUGS (3)
  1. ITRIZOLE [Suspect]
     Indication: DRUG USE FOR UNKNOWN INDICATION
     Route: 048
  2. LAMISIL [Concomitant]
     Route: 061
  3. NORVASC [Concomitant]
     Route: 048

REACTIONS (1)
  - BLOOD PRESSURE DECREASED [None]
